FAERS Safety Report 8811790 (Version 1)
Quarter: 2012Q4

REPORT INFORMATION
  Report Type: 
  Country: US (occurrence: US)
  Receive Date: 20120927
  Receipt Date: 20120927
  Transmission Date: 20130627
  Serious: Yes (Hospitalization)
  Sender: FDA-Public Use
  Company Number: US-GLAXOSMITHKLINE-A0775130A

PATIENT
  Sex: Female
  Weight: 121.4 kg

DRUGS (8)
  1. AVANDIA [Suspect]
     Indication: DIABETES MELLITUS
     Route: 048
     Dates: start: 20030416, end: 20061203
  2. AVANDAMET [Suspect]
     Indication: DIABETES MELLITUS
     Route: 048
     Dates: start: 20070201
  3. DEPAKOTE [Concomitant]
  4. HCTZ [Concomitant]
  5. SEROQUEL [Concomitant]
  6. LISINOPRIL [Concomitant]
  7. RISPERDAL [Concomitant]
  8. GLIMEPIRIDE [Concomitant]

REACTIONS (4)
  - Cardiac failure congestive [Recovering/Resolving]
  - Atrial fibrillation [Unknown]
  - Cardiac disorder [Unknown]
  - Condition aggravated [Unknown]
